FAERS Safety Report 9287826 (Version 1)
Quarter: 2013Q2

REPORT INFORMATION
  Report Type: Spontaneous
  Country: GR (occurrence: GR)
  Receive Date: 20130514
  Receipt Date: 20130514
  Transmission Date: 20140414
  Serious: Yes (Hospitalization)
  Sender: FDA-Public Use
  Company Number: GR-AMGEN-GRCSP2013014745

PATIENT
  Age: 71 Year
  Sex: Female
  Weight: 80 kg

DRUGS (2)
  1. PROLIA [Suspect]
     Indication: OSTEOPOROSIS
     Dosage: 60 MG, Q6MO
     Route: 058
     Dates: start: 20120703
  2. ANTIHYPERTENSIVES [Concomitant]

REACTIONS (4)
  - Pruritus [Recovered/Resolved]
  - Rash generalised [Recovered/Resolved]
  - Anaphylactic reaction [Unknown]
  - Urticaria [Recovered/Resolved]
